FAERS Safety Report 22962089 (Version 6)
Quarter: 2024Q2

REPORT INFORMATION
  Report Type: Spontaneous
  Country: DE (occurrence: DE)
  Receive Date: 20230920
  Receipt Date: 20240529
  Transmission Date: 20240716
  Serious: Yes (Hospitalization, Other)
  Sender: FDA-Public Use
  Company Number: DE-ROCHE-2121184

PATIENT
  Age: 50 Year
  Sex: Female

DRUGS (119)
  1. AMITRIPTYLINE [Suspect]
     Active Substance: AMITRIPTYLINE
     Dosage: 10 MG, QD
     Route: 065
  2. AMITRIPTYLINE [Suspect]
     Active Substance: AMITRIPTYLINE
     Indication: Depression
     Dosage: 10 MG,QD (0-0-1)
     Route: 065
  3. AMITRIPTYLINE [Suspect]
     Active Substance: AMITRIPTYLINE
     Dosage: 10 MG,QD (0-0-1)
     Route: 065
  4. AMITRIPTYLINE [Suspect]
     Active Substance: AMITRIPTYLINE
     Route: 065
  5. AMITRIPTYLINE [Suspect]
     Active Substance: AMITRIPTYLINE
     Dosage: 0-0-1
     Route: 065
  6. AMITRIPTYLINE [Suspect]
     Active Substance: AMITRIPTYLINE
     Dosage: 50 MG, QD
     Route: 065
  7. AMITRIPTYLINE [Suspect]
     Active Substance: AMITRIPTYLINE
     Dosage: 50 MG, QD
     Route: 065
  8. AMITRIPTYLINE [Suspect]
     Active Substance: AMITRIPTYLINE
     Dosage: 50 MG, QD, (0-0-1)
     Route: 065
  9. DICLOFENAC [Suspect]
     Active Substance: DICLOFENAC
     Indication: Back pain
     Dosage: UNK
     Route: 054
  10. DICLOFENAC [Suspect]
     Active Substance: DICLOFENAC
     Indication: Sacroiliac joint dysfunction
     Dosage: UNK
     Route: 054
  11. DICLOFENAC [Suspect]
     Active Substance: DICLOFENAC
     Indication: Arthralgia
     Dosage: 100 MG, QD
     Route: 048
     Dates: start: 20190122
  12. DICLOFENAC [Suspect]
     Active Substance: DICLOFENAC
     Dosage: UNK
     Route: 054
  13. OCREVUS [Suspect]
     Active Substance: OCRELIZUMAB
     Dosage: 300 MG
     Route: 041
     Dates: start: 20180503, end: 20180503
  14. OCREVUS [Suspect]
     Active Substance: OCRELIZUMAB
     Indication: Relapsing-remitting multiple sclerosis
     Dosage: 300 MG
     Route: 042
     Dates: start: 20180503, end: 20180503
  15. OCREVUS [Suspect]
     Active Substance: OCRELIZUMAB
     Dosage: 600 MG, NEXT DOSE ON 09 JUN 2020
     Route: 041
     Dates: start: 20181106
  16. OCREVUS [Suspect]
     Active Substance: OCRELIZUMAB
     Dosage: 600 MG, NEXT DOSE ON 09 JUN 2020
     Route: 042
     Dates: start: 20181106
  17. OCREVUS [Suspect]
     Active Substance: OCRELIZUMAB
     Dosage: 300 MG
     Route: 041
     Dates: start: 20180517, end: 20180517
  18. OCREVUS [Suspect]
     Active Substance: OCRELIZUMAB
     Dosage: 300 MG
     Route: 042
     Dates: start: 20180517, end: 20180517
  19. OCREVUS [Suspect]
     Active Substance: OCRELIZUMAB
     Dosage: 600 MG
     Route: 041
     Dates: start: 20180517
  20. OCREVUS [Suspect]
     Active Substance: OCRELIZUMAB
     Dosage: 600 MG
     Route: 041
     Dates: start: 20201207
  21. OCREVUS [Suspect]
     Active Substance: OCRELIZUMAB
     Dosage: 600 MG
     Route: 042
     Dates: start: 20180517
  22. OCREVUS [Suspect]
     Active Substance: OCRELIZUMAB
     Dosage: 600 MG
     Route: 042
     Dates: start: 20201207
  23. OCREVUS [Suspect]
     Active Substance: OCRELIZUMAB
     Dosage: UNK
     Route: 065
     Dates: start: 20210629
  24. OCREVUS [Suspect]
     Active Substance: OCRELIZUMAB
     Dosage: 600 MG
     Route: 041
     Dates: start: 20200609
  25. OCREVUS [Suspect]
     Active Substance: OCRELIZUMAB
     Dosage: 600 MG
     Route: 042
     Dates: start: 20200609
  26. ACYCLOVIR [Concomitant]
     Active Substance: ACYCLOVIR
     Indication: Product used for unknown indication
     Dosage: UNK, BID (1-0-1 FOR FOUR WEEKS)
     Route: 065
  27. ACYCLOVIR [Concomitant]
     Active Substance: ACYCLOVIR
     Dosage: 1-0-1 FOR FOUR WEEKS
     Route: 065
  28. ACYCLOVIR [Concomitant]
     Active Substance: ACYCLOVIR
     Dosage: 1-0-1 FOR FOUR WEEKS
     Route: 065
  29. ACYCLOVIR [Concomitant]
     Active Substance: ACYCLOVIR
     Dosage: UNK, BID (1-0-1 FOR FOUR WEEKS)
     Route: 065
  30. ACYCLOVIR [Concomitant]
     Active Substance: ACYCLOVIR
     Dosage: UNK, BID (1-0-1 FOR FOUR WEEKS)
     Route: 065
  31. ACYCLOVIR [Concomitant]
     Active Substance: ACYCLOVIR
     Dosage: UNK, BID (1-0-1 FOR FOUR WEEKS)
     Route: 065
  32. ASPIRIN [Concomitant]
     Active Substance: ASPIRIN
     Indication: Product used for unknown indication
     Dosage: 100 MG, QD
     Route: 048
  33. ASPIRIN [Concomitant]
     Active Substance: ASPIRIN
     Dosage: 100.000MG QD
     Route: 065
  34. BACLOFEN [Concomitant]
     Active Substance: BACLOFEN
     Dosage: 10 MG - 5 MG - 20 MG
     Route: 065
  35. BACLOFEN [Concomitant]
     Active Substance: BACLOFEN
     Dosage: 25 MG, QD
     Route: 065
  36. BACLOFEN [Concomitant]
     Active Substance: BACLOFEN
     Dosage: 25 MG
     Route: 065
  37. BACLOFEN [Concomitant]
     Active Substance: BACLOFEN
     Dosage: 5 MG, TID , 2-2-3
     Route: 065
  38. BACLOFEN [Concomitant]
     Active Substance: BACLOFEN
     Dosage: 5 MG, 2-2-3
     Route: 048
  39. BACLOFEN [Concomitant]
     Active Substance: BACLOFEN
     Dosage: 5 MG, 2-2-3
     Route: 065
  40. BACLOFEN [Concomitant]
     Active Substance: BACLOFEN
     Dosage: 10 MG - 15 MG - 25 MG
     Route: 065
  41. BACLOFEN [Concomitant]
     Active Substance: BACLOFEN
     Dosage: 75 MG, QD
     Route: 065
  42. BACLOFEN [Concomitant]
     Active Substance: BACLOFEN
     Dosage: 75 MG, QD
     Route: 065
  43. BACLOFEN [Concomitant]
     Active Substance: BACLOFEN
     Dosage: 10 MG - 15 MG - 25 MG
     Route: 065
  44. BACLOFEN [Concomitant]
     Active Substance: BACLOFEN
     Dosage: 15 MG - 15 MG - 25 MG
     Route: 048
  45. BACLOFEN [Concomitant]
     Active Substance: BACLOFEN
     Indication: Muscle spasticity
     Dosage: UNK (15 MG - 15 MG - 25 MG)
     Route: 048
  46. BACLOFEN [Concomitant]
     Active Substance: BACLOFEN
     Dosage: UNK, 10 MG - 15 MG - 25 MG
     Route: 065
  47. BACLOFEN [Concomitant]
     Active Substance: BACLOFEN
     Dosage: UNK, 10 MG - 15 MG - 25 MG
     Route: 065
  48. BACLOFEN [Concomitant]
     Active Substance: BACLOFEN
     Dosage: UNK, 10 MG - 5 MG - 20 MG
     Route: 065
  49. BACLOFEN [Concomitant]
     Active Substance: BACLOFEN
     Dosage: UNK, 15 MG - 15 MG - 25 MG
     Route: 048
  50. BACLOFENUM [Concomitant]
     Dosage: 5 MG, TID , 2-2-3
     Route: 065
  51. BACLOFENUM [Concomitant]
     Dosage: 25 MG, QD
     Route: 065
  52. BACLOFENUM [Concomitant]
     Indication: Muscle spasticity
     Dosage: 25 MG
     Route: 065
  53. BACLOFENUM [Concomitant]
     Dosage: 25 MG
     Route: 065
  54. BACLOFENUM [Concomitant]
     Dosage: 25.000MG
     Route: 065
  55. BACLOFENUM [Concomitant]
     Dosage: 25.000MG
     Route: 065
  56. BACLOFENUM [Concomitant]
     Dosage: 2-2-3
     Route: 065
  57. BACLOFENUM [Concomitant]
     Dosage: 2-2-3
     Route: 065
  58. BACLOFENUM [Concomitant]
     Dosage: 5 MG, 2-2-3
     Route: 065
  59. BACLOFENUM [Concomitant]
     Dosage: 5 MG,0.33 (10 MG - 5 MG - 20 MG)
     Route: 048
  60. BACLOFENUM [Concomitant]
     Dosage: 5 MG,0.33 (10 MG - 5 MG - 20 MG)
     Route: 065
  61. BACLOFENUM [Concomitant]
     Indication: Muscle spasticity
     Dosage: 75 MG, QD
     Route: 065
  62. BACLOFENUM [Concomitant]
     Dosage: 75 MG, QD
     Route: 065
  63. BACLOFENUM [Concomitant]
     Dosage: 75 MG, QD
     Route: 065
  64. BACLOFENUM [Concomitant]
     Dosage: 75.000MG QD
     Route: 065
  65. BACLOFENUM [Concomitant]
     Dosage: 75.000MG QD
     Route: 065
  66. BACLOFENUM [Concomitant]
     Dosage: 10 MG - 15 MG - 25 MG
     Route: 065
  67. BACLOFENUM [Concomitant]
     Dosage: 10 MG - 15 MG - 25 MG
     Route: 065
  68. BACLOFENUM [Concomitant]
     Dosage: 10 MG - 15 MG - 25 MG
     Route: 065
  69. BACLOFENUM [Concomitant]
     Dosage: 10 MG - 15 MG - 25 MG
     Route: 065
  70. BACLOFENUM [Concomitant]
     Dosage: 10 MG - 15 MG - 25 MG
     Route: 065
  71. BACLOFENUM [Concomitant]
     Dosage: 10 MG - 15 MG - 25 MG
     Route: 065
  72. BACLOFENUM [Concomitant]
     Dosage: 10 MG - 5 MG - 20 MG
     Route: 065
  73. BACLOFENUM [Concomitant]
     Dosage: 10 MG - 5 MG - 20 MG
     Route: 065
  74. BACLOFENUM [Concomitant]
     Dosage: 10 MG - 5 MG - 20 MG
     Route: 065
  75. BACLOFENUM [Concomitant]
     Dosage: 15 MG - 15 MG - 25 MG
     Route: 048
  76. BACLOFENUM [Concomitant]
     Dosage: 15 MG - 15 MG - 25 MG
     Route: 065
  77. BACLOFENUM [Concomitant]
     Dosage: 15 MG - 15 MG - 25 MG
     Route: 065
  78. BACLOFENUM [Concomitant]
     Dosage: UNK (15 MG - 15 MG - 25 MG)
     Route: 048
  79. BACLOFENUM [Concomitant]
     Dosage: UNK (15 MG - 15 MG - 25 MG)
     Route: 065
  80. BACLOFENUM [Concomitant]
     Dosage: UNK, 0.33 15 MG - 15 MG - 25 MG
     Route: 048
  81. BACLOFENUM [Concomitant]
     Dosage: UNK, 0.33 DAY 10 MG - 15 MG - 25 MG
     Route: 065
  82. BACLOFENUM [Concomitant]
     Dosage: UNK, 0.33 DAY 10 MG - 15 MG - 25 MG
     Route: 065
  83. BACLOFENUM [Concomitant]
     Dosage: UNK, 10 MG - 5 MG - 20 MG
     Route: 065
  84. BOTOX [Concomitant]
     Active Substance: ONABOTULINUMTOXINA
     Indication: Product used for unknown indication
     Dosage: UNK
     Route: 065
  85. BOTULINUM TOXIN TYPE A [Concomitant]
     Active Substance: BOTULINUM TOXIN TYPE A
     Indication: Product used for unknown indication
     Dosage: UNK
     Route: 065
  86. CARBAMAZEPINE [Concomitant]
     Active Substance: CARBAMAZEPINE
     Dosage: 2-0-1
     Route: 065
     Dates: start: 20190801
  87. CARBAMAZEPINE [Concomitant]
     Active Substance: CARBAMAZEPINE
     Dosage: 200 MG, 2-0-1
     Route: 065
     Dates: start: 20190801
  88. CARBAMAZEPINE [Concomitant]
     Active Substance: CARBAMAZEPINE
     Dosage: 0-1-0
     Route: 065
  89. CARBAMAZEPINE [Concomitant]
     Active Substance: CARBAMAZEPINE
     Dosage: 1-0-0
     Route: 065
  90. CARBAMAZEPINE [Concomitant]
     Active Substance: CARBAMAZEPINE
     Dosage: 400 MG, QD, 0-1-0
     Route: 048
  91. CARBAMAZEPINE [Concomitant]
     Active Substance: CARBAMAZEPINE
     Indication: Product used for unknown indication
     Dosage: 400 MG, QD, 1-0-0
     Route: 048
  92. CHOLECALCIFEROL [Concomitant]
     Active Substance: CHOLECALCIFEROL
     Indication: Vitamin D deficiency
     Dosage: 20000 IU, QD
     Route: 065
  93. CHOLECALCIFEROL [Concomitant]
     Active Substance: CHOLECALCIFEROL
     Dosage: 20000.000IU QD
     Route: 065
  94. BISACODYL [Concomitant]
     Active Substance: BISACODYL
     Indication: Product used for unknown indication
     Route: 065
  95. FOLIC ACID [Concomitant]
     Active Substance: FOLIC ACID
     Indication: Product used for unknown indication
     Dosage: 5 MG, QD
     Route: 065
  96. FOLIC ACID [Concomitant]
     Active Substance: FOLIC ACID
     Indication: Product used for unknown indication
     Dosage: 0.4 MG, QD
     Route: 065
  97. FOLIC ACID [Concomitant]
     Active Substance: FOLIC ACID
     Dosage: 5.000MG QD
     Route: 065
  98. MAGNESIUM [Concomitant]
     Active Substance: MAGNESIUM
     Dosage: 0-1-0
     Route: 065
  99. MAGNESIUM [Concomitant]
     Active Substance: MAGNESIUM
     Indication: Muscle spasms
     Dosage: 400 MG, QD 0-1-0
     Route: 065
  100. MAGNESIUM [Concomitant]
     Active Substance: MAGNESIUM
     Indication: Muscle spasms
  101. METHYLPREDNISOLONE [Concomitant]
     Active Substance: METHYLPREDNISOLONE
     Dosage: 100.000MG
     Route: 065
  102. METHYLPREDNISOLONE [Concomitant]
     Active Substance: METHYLPREDNISOLONE
     Dosage: 100.000MG
     Route: 065
  103. METHYLPREDNISOLONE [Concomitant]
     Active Substance: METHYLPREDNISOLONE
     Indication: Product used for unknown indication
     Route: 065
  104. BUDESONIDE [Concomitant]
     Active Substance: BUDESONIDE
     Indication: Product used for unknown indication
     Dosage: 2 DOSAGE FORM, QD, HUBS PER DAY
     Route: 065
  105. BUDESONIDE [Concomitant]
     Active Substance: BUDESONIDE
     Dosage: 2 HUBS PER DAY
     Route: 065
  106. PANTOPRAZOLE [Concomitant]
     Active Substance: PANTOPRAZOLE
     Indication: Product used for unknown indication
     Dosage: 40 MG, QD, 1-0-0
     Route: 048
  107. RAMIPRIL [Concomitant]
     Active Substance: RAMIPRIL
     Dosage: 10 MG, QD, 1-0-1
     Route: 065
  108. RAMIPRIL [Concomitant]
     Active Substance: RAMIPRIL
     Dosage: 1-0-1
     Route: 065
  109. RAMIPRIL [Concomitant]
     Active Substance: RAMIPRIL
     Dosage: 1-0-0
     Route: 065
  110. RAMIPRIL [Concomitant]
     Active Substance: RAMIPRIL
     Indication: Hypertension
     Dosage: 2.5 MG, QD, 1-0-0
     Route: 065
  111. SELENIUM [Concomitant]
     Active Substance: SELENIUM
     Dosage: QD
     Route: 065
  112. SELENIUM [Concomitant]
     Active Substance: SELENIUM
     Indication: Product used for unknown indication
     Dosage: UNK UNK, QD
     Route: 065
  113. TEGRETOL [Concomitant]
     Active Substance: CARBAMAZEPINE
     Dosage: 2-0-1
     Route: 065
     Dates: start: 20190801
  114. TEGRETOL [Concomitant]
     Active Substance: CARBAMAZEPINE
     Dosage: 0-1-0
     Route: 065
  115. TEGRETOL [Concomitant]
     Active Substance: CARBAMAZEPINE
     Indication: Product used for unknown indication
     Dosage: 1-0-0
     Route: 065
  116. METHYLPREDNISOLONE [Concomitant]
     Active Substance: METHYLPREDNISOLONE
     Indication: Product used for unknown indication
     Dosage: 100.000MG
     Route: 065
  117. ZINC [Concomitant]
     Active Substance: PYRITHIONE ZINC\ZINC\ZINC CHLORIDE
     Indication: Product used for unknown indication
     Dosage: 400 MG
     Route: 065
  118. ZINC [Concomitant]
     Active Substance: PYRITHIONE ZINC\ZINC\ZINC CHLORIDE
     Dosage: 400.000MG
     Route: 065
  119. ZINKAMIN [Concomitant]
     Indication: Product used for unknown indication
     Dosage: 400.000MG
     Route: 065

REACTIONS (57)
  - Gastroenteritis norovirus [Recovered/Resolved]
  - Meniscus injury [Recovered/Resolved]
  - Norovirus infection [Recovered/Resolved]
  - Spinal stenosis [Not Recovered/Not Resolved]
  - Osteoarthritis [Not Recovered/Not Resolved]
  - Multiple sclerosis [Not Recovered/Not Resolved]
  - Back pain [Recovered/Resolved]
  - Fatigue [Recovered/Resolved]
  - Urticaria [Recovered/Resolved]
  - Drug ineffective [Unknown]
  - Dyspepsia [Not Recovered/Not Resolved]
  - Feeling abnormal [Not Recovered/Not Resolved]
  - Abdominal pain upper [Recovered/Resolved]
  - Nausea [Recovered/Resolved]
  - Acquired diaphragmatic eventration [Not Recovered/Not Resolved]
  - Migraine [Recovered/Resolved]
  - Sacral pain [Recovering/Resolving]
  - Cholelithiasis [Recovered/Resolved]
  - C-reactive protein increased [Recovering/Resolving]
  - Chest discomfort [Recovering/Resolving]
  - Neuralgia [Recovered/Resolved]
  - Infection [Recovered/Resolved]
  - Infusion related reaction [Recovered/Resolved]
  - Effusion [Not Recovered/Not Resolved]
  - Chondropathy [Not Recovered/Not Resolved]
  - Herpes virus infection [Recovered/Resolved]
  - Nasopharyngitis [Not Recovered/Not Resolved]
  - Sleep disorder [Recovering/Resolving]
  - Skin laceration [Recovered/Resolved]
  - Irritable bowel syndrome [Recovered/Resolved]
  - Muscle spasticity [Recovering/Resolving]
  - Infrapatellar fat pad inflammation [Not Recovered/Not Resolved]
  - Sacroiliitis [Recovered/Resolved]
  - Respiratory tract infection [Recovered/Resolved]
  - Genital herpes [Recovered/Resolved]
  - Sensory disturbance [Recovering/Resolving]
  - Angina pectoris [Not Recovered/Not Resolved]
  - Terminal insomnia [Recovering/Resolving]
  - White blood cell count decreased [Not Recovered/Not Resolved]
  - Headache [Recovered/Resolved]
  - Dizziness [Recovered/Resolved]
  - Pruritus [Recovered/Resolved]
  - Insomnia [Recovered/Resolved]
  - Rash [Recovered/Resolved]
  - Paraesthesia [Recovered/Resolved]
  - Memory impairment [Recovered/Resolved]
  - Therapeutic product effect decreased [Recovered/Resolved]
  - Cystitis noninfective [Recovered/Resolved]
  - Joint arthroplasty [Recovered/Resolved]
  - Pyrexia [Recovered/Resolved]
  - Cough [Recovering/Resolving]
  - Oropharyngeal pain [Recovering/Resolving]
  - Product administration error [Unknown]
  - Stomatitis [Recovered/Resolved]
  - Mouth ulceration [Recovered/Resolved]
  - Dyspnoea [Not Recovered/Not Resolved]
  - Ear infection [Recovered/Resolved]

NARRATIVE: CASE EVENT DATE: 20180503
